FAERS Safety Report 5448849-0 (Version None)
Quarter: 2007Q3

REPORT INFORMATION
  Report Type: 
  Country: None (occurrence: None)
  Receive Date: 20070911
  Receipt Date: 20070719
  Transmission Date: 20080115
  Serious: No
  Sender: FDA-Public Use
  Company Number: US-BRISTOL-MYERS SQUIBB COMPANY-13851605

PATIENT
  Age: 59 Year
  Weight: 91 kg

DRUGS (15)
  1. EMSAM [Suspect]
     Route: 062
  2. ORENCIA [Concomitant]
  3. LAMICTAL [Concomitant]
  4. XANAX [Concomitant]
  5. AMBIEN [Concomitant]
  6. LOTREL [Concomitant]
  7. PREDNISONE TAB [Concomitant]
  8. ZINC [Concomitant]
  9. ZEGERID [Concomitant]
  10. NADOLOL [Concomitant]
  11. OXYCONTIN [Concomitant]
  12. OMACOR [Concomitant]
  13. ALPHAGAN [Concomitant]
  14. BONIVA [Concomitant]
  15. CALCIUM [Concomitant]

REACTIONS (1)
  - FATIGUE [None]
